FAERS Safety Report 6218044-6 (Version None)
Quarter: 2009Q2

REPORT INFORMATION
  Report Type: 
  Country: None (occurrence: None)
  Receive Date: 20090602
  Receipt Date: 20090220
  Transmission Date: 20091009
  Serious: Yes (Life-Threatening, Hospitalization)
  Sender: FDA-Public Use
  Company Number: 2009TG0042

PATIENT
  Age: 81 Year
  Sex: Male
  Weight: 76.2043 kg

DRUGS (9)
  1. TRIGLIDE [Suspect]
  2. PARATHYROID HORMONES [Concomitant]
  3. METOPROLOL TARTRATE [Concomitant]
  4. PLAVIX [Concomitant]
  5. CRESTOR [Concomitant]
  6. TRICOR [Concomitant]
  7. ASPIRIN [Concomitant]
  8. VITAMIN D [Concomitant]
  9. PHOSPHORUS [Concomitant]

REACTIONS (8)
  - ARTERIAL BYPASS OPERATION [None]
  - ARTERIOSCLEROSIS [None]
  - CATARACT [None]
  - DIABETES MELLITUS [None]
  - NEUROPATHY PERIPHERAL [None]
  - RENAL FAILURE CHRONIC [None]
  - STENT PLACEMENT [None]
  - THROMBOCYTOPENIA [None]
